FAERS Safety Report 7046971-9 (Version None)
Quarter: 2010Q4

REPORT INFORMATION
  Report Type: 
  Country: None (occurrence: None)
  Receive Date: 20101015
  Receipt Date: 20101013
  Transmission Date: 20110411
  Serious: Yes (Death, Hospitalization)
  Sender: FDA-Public Use
  Company Number: CH-BRISTOL-MYERS SQUIBB COMPANY-15332091

PATIENT
  Age: 56 Year
  Sex: Male

DRUGS (5)
  1. TAXOL [Suspect]
     Indication: TESTIS CANCER
     Route: 042
     Dates: start: 20090415, end: 20090417
  2. BLEOMYCIN SULFATE [Suspect]
     Indication: TESTIS CANCER
     Dosage: 4 CYCLES
     Route: 042
     Dates: start: 20081006, end: 20090118
  3. CISPLATIN [Suspect]
     Indication: TESTIS CANCER
     Dosage: 4 CYCLES
     Dates: start: 20081006, end: 20090118
  4. ETOPOSIDE [Suspect]
     Indication: TESTIS CANCER
     Dosage: 4 CYCLES
     Dates: start: 20081006, end: 20090118
  5. HOLOXAN [Suspect]
     Indication: TESTIS CANCER
     Dates: start: 20090415, end: 20090417

REACTIONS (1)
  - RESPIRATORY FAILURE [None]
